FAERS Safety Report 24002311 (Version 2)
Quarter: 2024Q3

REPORT INFORMATION
  Report Type: Spontaneous
  Country: US (occurrence: US)
  Receive Date: 20240622
  Receipt Date: 20240711
  Transmission Date: 20241017
  Serious: No
  Sender: JOHNSON AND JOHNSON
  Company Number: US-JNJFOC-20240641582

PATIENT

DRUGS (1)
  1. WOMENS ROGAINE [Suspect]
     Active Substance: MINOXIDIL
     Indication: Product used for unknown indication
     Dosage: USE DAILY AT NIGHTTIME
     Route: 061

REACTIONS (3)
  - Seborrhoea [Unknown]
  - Application site irritation [Unknown]
  - Product formulation issue [Unknown]
